FAERS Safety Report 9270297 (Version 1)
Quarter: 2013Q2

REPORT INFORMATION
  Report Type: Spontaneous
  Country: PH (occurrence: PH)
  Receive Date: 20130503
  Receipt Date: 20130503
  Transmission Date: 20140414
  Serious: Yes (Hospitalization)
  Sender: FDA-Public Use
  Company Number: PH-009507513-1305PHL001346

PATIENT
  Age: 47 Year
  Sex: Male

DRUGS (6)
  1. PEG-INTRON REDIPEN [Suspect]
     Indication: HEPATITIS C
     Dosage: 100 MICROGRAM, QW
     Route: 058
     Dates: start: 20120731
  2. PEG-INTRON REDIPEN [Suspect]
     Dosage: 100 MICROGRAM, QW
     Route: 058
  3. REBETOL [Suspect]
     Indication: HEPATITIS C
     Dosage: 1000 MG, QD
     Route: 048
     Dates: start: 20120731
  4. REBETOL [Suspect]
     Dosage: 600 MG, QD
     Route: 048
  5. LOSARTAN POTASSIUM [Concomitant]
     Indication: HYPERTENSION
  6. IBERET [Concomitant]

REACTIONS (2)
  - Haemoglobin decreased [Recovered/Resolved]
  - Adverse event [Unknown]
